FAERS Safety Report 8843102 (Version 2)
Quarter: 2015Q2

REPORT INFORMATION
  Report Type: Report from Study
  Country: US (occurrence: US)
  Receive Date: 20121016
  Receipt Date: 20150623
  Transmission Date: 20150821
  Serious: Yes (Hospitalization)
  Sender: FDA-Public Use
  Company Number: US-ROCHE-1132830

PATIENT
  Sex: Female
  Weight: 24.1 kg

DRUGS (15)
  1. TRILEPTAL [Concomitant]
     Active Substance: OXCARBAZEPINE
     Route: 048
  2. COENZYME Q-10 [Concomitant]
     Route: 065
  3. CREON [Concomitant]
     Active Substance: PANCRELIPASE AMYLASE\PANCRELIPASE LIPASE\PANCRELIPASE PROTEASE
     Dosage: CAPSULES WITH MEAL AND SNACKS
     Route: 048
  4. VITAMIN B2 [Concomitant]
     Active Substance: RIBOFLAVIN
     Dosage: 0.5 TABLET TWICE A DAY
     Route: 048
  5. NUTROPIN AQ [Suspect]
     Active Substance: SOMATROPIN
     Indication: DWARFISM
     Route: 058
     Dates: start: 20010613
  6. CALCIDIOL [Concomitant]
     Route: 065
  7. AQUADEKS [Concomitant]
     Route: 048
  8. CORTEF [Concomitant]
     Active Substance: HYDROCORTISONE
     Route: 048
     Dates: start: 200703
  9. HUMALOG [Concomitant]
     Active Substance: INSULIN LISPRO
     Dosage: 4-5 TIMES WITHIN 15 MIN OR IMMEDIATELY AFTER MEALS
     Route: 058
  10. CARNITOR [Concomitant]
     Active Substance: LEVOCARNITINE
     Route: 065
  11. VITAMIN C [Concomitant]
     Active Substance: ASCORBIC ACID
     Route: 048
  12. SODIUM FLUORIDE. [Concomitant]
     Active Substance: SODIUM FLUORIDE
     Route: 065
  13. VITAMIN B1 [Concomitant]
     Active Substance: THIAMINE HYDROCHLORIDE
     Route: 065
  14. VITAMIN E [Concomitant]
     Active Substance: .ALPHA.-TOCOPHEROL
     Route: 065
  15. LANTUS [Concomitant]
     Active Substance: INSULIN GLARGINE
     Route: 058

REACTIONS (4)
  - Infection [Unknown]
  - Foot deformity [Unknown]
  - Dry skin [Unknown]
  - Skin irritation [Unknown]
